FAERS Safety Report 24721587 (Version 1)
Quarter: 2024Q4

REPORT INFORMATION
  Report Type: Other
  Country: US (occurrence: US)
  Receive Date: 20241211
  Receipt Date: 20241211
  Transmission Date: 20250114
  Serious: Yes (Hospitalization)
  Sender: AIR PRODUCTS
  Company Number: US-Air Products and Chemicals-2166867

PATIENT
  Age: 5 Year
  Sex: Male

DRUGS (1)
  1. OXYGEN [Suspect]
     Active Substance: OXYGEN

REACTIONS (2)
  - Seizure [Unknown]
  - Apnoea [Unknown]
